FAERS Safety Report 4343720-X (Version None)
Quarter: 2004Q2

REPORT INFORMATION
  Report Type: 
  Country: None (occurrence: None)
  Receive Date: 20040419
  Receipt Date: 20040402
  Transmission Date: 20050107
  Serious: Yes (Hospitalization)
  Sender: FDA-Public Use
  Company Number: 2004US002068

PATIENT
  Age: 50 Year
  Sex: Female
  Weight: 64.9 kg

DRUGS (14)
  1. ALOXI [Suspect]
     Indication: PROPHYLAXIS OF NAUSEA AND VOMITING
     Dosage: 0.25MG, SINGLE, INTRAVENOUS (SEE IMAGE)
     Route: 042
     Dates: start: 20031215, end: 20031215
  2. ALOXI [Suspect]
     Indication: PROPHYLAXIS OF NAUSEA AND VOMITING
     Dosage: 0.25MG, SINGLE, INTRAVENOUS (SEE IMAGE)
     Route: 042
     Dates: start: 20031222, end: 20031222
  3. ALOXI [Suspect]
     Indication: PROPHYLAXIS OF NAUSEA AND VOMITING
     Dosage: 0.25MG, SINGLE, INTRAVENOUS (SEE IMAGE)
     Route: 042
     Dates: start: 20040109, end: 20040109
  4. CISPLATIN [Suspect]
     Indication: OVARIAN CANCER
     Dosage: 50 MG, UNK; INTRAVENOUS (SEE IMAGE)
     Route: 042
     Dates: start: 20031215, end: 20031215
  5. CISPLATIN [Suspect]
     Indication: OVARIAN CANCER
     Dosage: 50 MG, UNK; INTRAVENOUS (SEE IMAGE)
     Route: 042
     Dates: start: 20031222, end: 20031222
  6. CISPLATIN [Suspect]
     Indication: OVARIAN CANCER
     Dosage: 50 MG, UNK; INTRAVENOUS (SEE IMAGE)
     Route: 042
     Dates: start: 20040109, end: 20040109
  7. DECADRON [Concomitant]
  8. SODIUM CHLORIDE [Concomitant]
  9. DARVOCET-N (PARACETAMOL, DEXTROPROPOXYPHENE NAPSILATE) [Concomitant]
  10. LORAZEPAM [Concomitant]
  11. OMEPRAZOLE [Concomitant]
  12. SENOKOT [Concomitant]
  13. EFFEXOR [Concomitant]
  14. OXYCONTIN [Concomitant]

REACTIONS (15)
  - ANAPHYLACTIC REACTION [None]
  - ANGIONEUROTIC OEDEMA [None]
  - ANXIETY [None]
  - BLOOD ALKALINE PHOSPHATASE INCREASED [None]
  - BLOOD PH DECREASED [None]
  - BURNING SENSATION [None]
  - DRUG HYPERSENSITIVITY [None]
  - DYSPNOEA [None]
  - ERYTHEMA [None]
  - FEELING HOT [None]
  - FLUSHING [None]
  - HYPOTENSION [None]
  - HYPOXIA [None]
  - PRURITUS [None]
  - RESPIRATORY FAILURE [None]
